FAERS Safety Report 9263192 (Version 1)
Quarter: 2013Q2

REPORT INFORMATION
  Report Type: Spontaneous
  Country: GB (occurrence: GB)
  Receive Date: 20130430
  Receipt Date: 20130430
  Transmission Date: 20140414
  Serious: Yes (Death)
  Sender: FDA-Public Use
  Company Number: GB-ELI_LILLY_AND_COMPANY-GB201304006651

PATIENT
  Age: 48 Year
  Sex: Male

DRUGS (1)
  1. HUMATROPE [Suspect]
     Indication: PITUITARY TUMOUR BENIGN
     Dosage: 0.25 MG, QD
     Route: 058
     Dates: start: 201202, end: 20130422

REACTIONS (1)
  - Death [Fatal]
